FAERS Safety Report 6424008-X (Version None)
Quarter: 2009Q4

REPORT INFORMATION
  Report Type: 
  Country: None (occurrence: None)
  Receive Date: 20091028
  Receipt Date: 20091015
  Transmission Date: 20100525
  Serious: Yes (Hospitalization)
  Sender: FDA-Public Use
  Company Number: PAR_03179_2009

PATIENT
  Sex: Female

DRUGS (5)
  1. CAPOTEN [Suspect]
     Indication: ESSENTIAL HYPERTENSION
     Dosage: (1 DF QD ORAL)
     Route: 048
     Dates: start: 20090806, end: 20090808
  2. CAPOTEN [Suspect]
     Indication: HYPERTENSIVE CRISIS
     Dosage: (DF)
  3. FORZAAR /01625701/ (FORZAAR - LOSARTAN POTASSIUM + HCTZ) (NOT SPECIFIE [Suspect]
     Indication: ESSENTIAL HYPERTENSION
     Dosage: (1 DF QD ORAL)
     Route: 048
     Dates: start: 20090806, end: 20090808
  4. MEPRAL /00661201/ [Concomitant]
  5. RYTMONORM [Concomitant]

REACTIONS (3)
  - ANGIOEDEMA [None]
  - DRUG HYPERSENSITIVITY [None]
  - HYPERTENSIVE CRISIS [None]
